FAERS Safety Report 18739208 (Version 1)
Quarter: 2021Q1

REPORT INFORMATION
  Report Type: Spontaneous
  Country: US (occurrence: US)
  Receive Date: 20210114
  Receipt Date: 20210114
  Transmission Date: 20210419
  Serious: No
  Sender: FDA-Public Use
  Company Number: US-ALLERGAN-2044007US

PATIENT
  Sex: Female

DRUGS (4)
  1. LOSARTAN. [Concomitant]
     Active Substance: LOSARTAN
     Indication: HYPERTENSION
  2. UBRELVY [Suspect]
     Active Substance: UBROGEPANT
     Indication: MIGRAINE
     Dosage: 100 MG
     Route: 048
     Dates: start: 202007
  3. MAGNESIUM [Concomitant]
     Active Substance: MAGNESIUM
  4. UBRELVY [Suspect]
     Active Substance: UBROGEPANT
     Dosage: 50 MG AS NEEDED EVERY 2 DAYS
     Route: 048
     Dates: start: 201909

REACTIONS (2)
  - Amnesia [Recovering/Resolving]
  - Alopecia [Recovering/Resolving]
